FAERS Safety Report 22393977 (Version 2)
Quarter: 2023Q2

REPORT INFORMATION
  Report Type: Spontaneous
  Country: AU (occurrence: AU)
  Receive Date: 20230601
  Receipt Date: 20230607
  Transmission Date: 20230722
  Serious: Yes (Other)
  Sender: FDA-Public Use
  Company Number: AU-JNJFOC-20230567788

PATIENT
  Age: 36 Year
  Sex: Female

DRUGS (1)
  1. REMICADE [Suspect]
     Active Substance: INFLIXIMAB
     Indication: Crohn^s disease
     Route: 041
     Dates: start: 2008, end: 2013

REACTIONS (4)
  - Pyoderma gangrenosum [Unknown]
  - Ileocaecal resection [Unknown]
  - Fistulotomy [Unknown]
  - Treatment failure [Unknown]

NARRATIVE: CASE EVENT DATE: 20090101
